FAERS Safety Report 23883040 (Version 5)
Quarter: 2025Q1

REPORT INFORMATION
  Report Type: Report from Study
  Country: US (occurrence: US)
  Receive Date: 20240522
  Receipt Date: 20250227
  Transmission Date: 20250408
  Serious: Yes (Hospitalization, Other)
  Sender: SANDOZ
  Company Number: US-002147023-NVSC2020US309000

PATIENT
  Sex: Female
  Weight: 65.76 kg

DRUGS (23)
  1. ADCIRCA [Suspect]
     Active Substance: TADALAFIL
     Indication: Pulmonary arterial hypertension
     Route: 065
  2. ADEMPAS [Suspect]
     Active Substance: RIOCIGUAT
     Indication: Pulmonary arterial hypertension
     Dosage: 1 MG, TID
     Route: 065
     Dates: end: 20220630
  3. AMBRISENTAN [Suspect]
     Active Substance: AMBRISENTAN
     Indication: Pulmonary arterial hypertension
     Route: 065
  4. OPSUMIT [Suspect]
     Active Substance: MACITENTAN
     Indication: Pulmonary arterial hypertension
     Route: 065
  5. TREPROSTINIL [Suspect]
     Active Substance: TREPROSTINIL
     Route: 042
  6. TREPROSTINIL [Suspect]
     Active Substance: TREPROSTINIL
     Route: 042
     Dates: start: 20200117
  7. TREPROSTINIL [Suspect]
     Active Substance: TREPROSTINIL
     Indication: Pulmonary arterial hypertension
     Route: 042
     Dates: start: 20200117
  8. TREPROSTINIL [Suspect]
     Active Substance: TREPROSTINIL
     Route: 042
  9. TREPROSTINIL [Suspect]
     Active Substance: TREPROSTINIL
     Route: 042
  10. TREPROSTINIL [Suspect]
     Active Substance: TREPROSTINIL
     Route: 042
  11. TREPROSTINIL [Suspect]
     Active Substance: TREPROSTINIL
     Route: 042
  12. TREPROSTINIL [Suspect]
     Active Substance: TREPROSTINIL
     Route: 042
  13. TREPROSTINIL [Suspect]
     Active Substance: TREPROSTINIL
     Route: 042
  14. TREPROSTINIL [Suspect]
     Active Substance: TREPROSTINIL
     Route: 042
     Dates: start: 20200117
  15. TREPROSTINIL [Suspect]
     Active Substance: TREPROSTINIL
     Route: 042
     Dates: start: 20200117
  16. ADCIRCA [Concomitant]
     Active Substance: TADALAFIL
     Indication: Product used for unknown indication
     Route: 065
  17. FAMOTIDINE [Concomitant]
     Active Substance: FAMOTIDINE
     Indication: Product used for unknown indication
     Route: 065
  18. KLOR-CON M20 [Concomitant]
     Active Substance: POTASSIUM CHLORIDE
     Indication: Product used for unknown indication
     Route: 065
  19. MAGNESIUM [Concomitant]
     Active Substance: MAGNESIUM
     Indication: Product used for unknown indication
     Route: 065
  20. PANTOPRAZOLE SODIUM [Concomitant]
     Active Substance: PANTOPRAZOLE SODIUM
     Indication: Product used for unknown indication
     Route: 065
  21. PROPRANOLOL HYDROCHLORIDE [Concomitant]
     Active Substance: PROPRANOLOL HYDROCHLORIDE
     Indication: Product used for unknown indication
     Route: 065
  22. TADALAFIL [Concomitant]
     Active Substance: TADALAFIL
     Indication: Product used for unknown indication
     Route: 065
  23. VITAMIN C [Concomitant]
     Active Substance: ASCORBIC ACID
     Indication: Product used for unknown indication
     Route: 065

REACTIONS (29)
  - Diverticulitis [Unknown]
  - Intestinal haemorrhage [Unknown]
  - Gastrointestinal haemorrhage [Unknown]
  - Intestinal haemorrhage [Unknown]
  - Melaena [Unknown]
  - Kidney infection [Unknown]
  - Lyme disease [Unknown]
  - Heart rate increased [Unknown]
  - Urinary tract infection [Unknown]
  - Gastrooesophageal reflux disease [Unknown]
  - Abdominal discomfort [Unknown]
  - Wound [Unknown]
  - Nasal congestion [Unknown]
  - Wheezing [Unknown]
  - Peripheral swelling [Unknown]
  - Swelling [Unknown]
  - Application site pain [Recovering/Resolving]
  - Skin irritation [Unknown]
  - Urticaria [Unknown]
  - Blister [Unknown]
  - Nasopharyngitis [Unknown]
  - Eye pruritus [Unknown]
  - Rhinorrhoea [Unknown]
  - Lacrimation increased [Unknown]
  - Throat irritation [Unknown]
  - Fatigue [Unknown]
  - Nausea [Unknown]
  - Headache [Unknown]
  - Mole excision [Unknown]
